FAERS Safety Report 4627745-2 (Version None)
Quarter: 2005Q2

REPORT INFORMATION
  Report Type: 
  Country: None (occurrence: None)
  Receive Date: 20050401
  Receipt Date: 20050324
  Transmission Date: 20051028
  Serious: Yes (Life-Threatening, Hospitalization)
  Sender: FDA-Public Use
  Company Number: 2005-126817-NL

PATIENT
  Age: 36 Year
  Sex: Female

DRUGS (3)
  1. CHORIONIC GONADOTROPIN [Suspect]
     Indication: INFERTILITY
     Dosage: DF
  2. MENOTROPINS [Suspect]
     Indication: INFERTILITY
     Dosage: DF
  3. ESTROGEN NOS [Suspect]
     Indication: INFERTILITY
     Dosage: DF ORAL
     Route: 048

REACTIONS (6)
  - CARDIO-RESPIRATORY ARREST [None]
  - COMA [None]
  - HYPOPERFUSION [None]
  - RENAL ARTERY THROMBOSIS [None]
  - RENAL INFARCT [None]
  - SUBARACHNOID HAEMORRHAGE [None]
